FAERS Safety Report 9691111 (Version 2)
Quarter: 2013Q4

REPORT INFORMATION
  Report Type: Report from Study
  Country: KR (occurrence: KR)
  Receive Date: 20131115
  Receipt Date: 20131120
  Transmission Date: 20140711
  Serious: Yes (Hospitalization)
  Sender: FDA-Public Use
  Company Number: KR-JNJFOC-20131105681

PATIENT
  Age: 18 Year
  Sex: Female
  Weight: 48.1 kg

DRUGS (7)
  1. REMICADE [Suspect]
     Indication: CROHN^S DISEASE
     Route: 042
     Dates: start: 20130225, end: 20130911
  2. AZAFRINE [Suspect]
     Indication: CROHN^S DISEASE
     Dosage: ONE TABLET WITH TWICE FREQUENCY
     Route: 048
     Dates: start: 20130828, end: 20130923
  3. AZAFRINE [Suspect]
     Indication: CROHN^S DISEASE
     Dosage: ONE TABLET ONCE
     Route: 048
     Dates: start: 20130726, end: 20130827
  4. NISOLONE [Concomitant]
     Indication: CROHN^S DISEASE
     Dosage: 8 TABLETS WITH FREQUENCY OF 0.5 (UNITS UNSPECIFIED)
     Route: 048
     Dates: start: 20130216, end: 20130222
  5. NISOLONE [Concomitant]
     Indication: CROHN^S DISEASE
     Dosage: 2.67 TABLETS THRICE
     Route: 048
     Dates: start: 20130119, end: 20130215
  6. PENTASA S.R. [Concomitant]
     Indication: CROHN^S DISEASE
     Dosage: 2 TABLETS WITH THRICE FREQUENCY
     Route: 048
     Dates: start: 20130119
  7. FEROBA YOU SR [Concomitant]
     Indication: CROHN^S DISEASE
     Dosage: 3 TABLETS; FREQUENCY: 2
     Route: 048
     Dates: start: 20130117, end: 20130531

REACTIONS (8)
  - Abdominal pain [Recovered/Resolved]
  - Periorbital cellulitis [Recovered/Resolved]
  - Haematochezia [Unknown]
  - Change of bowel habit [Unknown]
  - Vomiting [Unknown]
  - Nausea [Unknown]
  - Alopecia [Unknown]
  - Oropharyngeal pain [Unknown]
